FAERS Safety Report 8156039-6 (Version None)
Quarter: 2012Q1

REPORT INFORMATION
  Report Type: 
  Country: None (occurrence: None)
  Receive Date: 20120222
  Receipt Date: 20120209
  Transmission Date: 20120608
  Serious: Yes (Other)
  Sender: FDA-Public Use
  Company Number: US-ELI_LILLY_AND_COMPANY-US201112007756

PATIENT
  Sex: Female
  Weight: 68.934 kg

DRUGS (12)
  1. DEXAMETHASONE SODIUM PHOSPHATE [Concomitant]
     Dosage: 8 MG, BID X 3 DAYS
  2. VITAMIN B-12 [Concomitant]
     Dosage: 1000 UG, UNK
     Dates: start: 20111214
  3. SPIRIVA [Concomitant]
     Dosage: 18 UG, QD
     Route: 055
  4. ACETAMINOPHEN [Concomitant]
  5. ZEGERID [Concomitant]
     Dosage: 20-1100 MG, QD
     Route: 048
  6. FOLIC ACID [Concomitant]
     Dosage: 1 MG, UNK
     Route: 048
     Dates: start: 20111211
  7. EMEND [Concomitant]
  8. SODIUM CHLORIDE [Concomitant]
  9. DETROL [Concomitant]
     Dosage: 2 MG, BID, PRN
     Route: 048
  10. TRAMADOL                           /00599201/ [Concomitant]
     Dosage: 37.5 MG, TID, PRN
     Route: 048
  11. ALIMTA [Suspect]
     Indication: LUNG ADENOCARCINOMA STAGE III
     Dosage: 870 MG, UNKNOWN
     Route: 042
     Dates: start: 20111228, end: 20111228
  12. ALOXI [Concomitant]

REACTIONS (1)
  - ANAPHYLACTIC REACTION [None]
